FAERS Safety Report 15465007 (Version 1)
Quarter: 2018Q4

REPORT INFORMATION
  Report Type: Spontaneous
  Country: IT (occurrence: IT)
  Receive Date: 20181004
  Receipt Date: 20181004
  Transmission Date: 20190204
  Serious: Yes (Life-Threatening)
  Sender: FDA-Public Use
  Company Number: IT-PFIZER INC-19571

PATIENT
  Age: 59 Year
  Sex: Male

DRUGS (7)
  1. VANCOMYCIN HCL [Suspect]
     Active Substance: VANCOMYCIN HYDROCHLORIDE
     Dosage: UNK
     Route: 042
     Dates: start: 20080402, end: 20080402
  2. MAALOX [CALCIUM CARBONATE] [Concomitant]
  3. DOBETIN [CYANOCOBALAMIN] [Concomitant]
  4. CALCIO CARBONATO [Concomitant]
  5. PREFOLIC [Concomitant]
     Active Substance: LEUCOVORIN CALCIUM
  6. SINTROM [Concomitant]
     Active Substance: ACENOCOUMAROL
  7. EPOETINA ALFA [Concomitant]

REACTIONS (4)
  - Loss of consciousness [Recovered/Resolved]
  - Dyspnoea [Recovered/Resolved]
  - Laryngeal oedema [Recovered/Resolved]
  - Hypersensitivity [Recovered/Resolved]

NARRATIVE: CASE EVENT DATE: 20080402
